FAERS Safety Report 18946953 (Version 1)
Quarter: 2021Q1

REPORT INFORMATION
  Report Type: Spontaneous
  Country: US (occurrence: US)
  Receive Date: 20210227
  Receipt Date: 20210227
  Transmission Date: 20210420
  Serious: No
  Sender: FDA-Public Use
  Company Number: US-ROCHE-2512309

PATIENT
  Sex: Female
  Weight: 49.9 kg

DRUGS (2)
  1. XOLAIR [Suspect]
     Active Substance: OMALIZUMAB
     Indication: URTICARIA
     Dosage: 150 MG/ML PFS INJ
     Route: 058
     Dates: start: 201901
  2. XOLAIR [Suspect]
     Active Substance: OMALIZUMAB
     Indication: IDIOPATHIC URTICARIA
     Dosage: PREFILLED SYRINGE FOR INJECTION
     Route: 058
     Dates: start: 201808

REACTIONS (5)
  - Pruritus [Unknown]
  - Joint swelling [Unknown]
  - Therapeutic response decreased [Unknown]
  - Product quality issue [Unknown]
  - Drug ineffective [Unknown]
